FAERS Safety Report 17474943 (Version 5)
Quarter: 2020Q2

REPORT INFORMATION
  Report Type: Spontaneous
  Country: US (occurrence: US)
  Receive Date: 20200228
  Receipt Date: 20200630
  Transmission Date: 20200713
  Serious: Yes (Other)
  Sender: FDA-Public Use
  Company Number: US-PFIZER INC-2020088898

PATIENT
  Age: 91 Year
  Sex: Female
  Weight: 50.8 kg

DRUGS (2)
  1. PREMARIN [Suspect]
     Active Substance: ESTROGENS, CONJUGATED
     Indication: VULVOVAGINAL DISCOMFORT
     Dosage: UNK (AT LEAST 2 OR 3 TIMES A WEEK/ USE DAILY X2WEEKS, THEN 2-3X/WEEK)
     Route: 067
     Dates: start: 202001
  2. PREMARIN [Suspect]
     Active Substance: ESTROGENS, CONJUGATED
     Indication: ATROPHIC VULVOVAGINITIS
     Dosage: UNK[USE DAILY X2WEEKS, THEN 2-3X/WEEK]
     Route: 067
     Dates: start: 20191212

REACTIONS (7)
  - Drug ineffective [Unknown]
  - Vaginal haemorrhage [Unknown]
  - Pruritus [Unknown]
  - Postmenopausal haemorrhage [Unknown]
  - Scratch [Unknown]
  - Off label use [Unknown]
  - Discomfort [Unknown]

NARRATIVE: CASE EVENT DATE: 202001
